FAERS Safety Report 21094818 (Version 1)
Quarter: 2022Q3

REPORT INFORMATION
  Report Type: Spontaneous
  Country: US (occurrence: US)
  Receive Date: 20220718
  Receipt Date: 20220718
  Transmission Date: 20221027
  Serious: No
  Sender: FDA-Public Use
  Company Number: US-FreseniusKabi-FK202209624

PATIENT
  Age: 23 Year
  Sex: Female
  Weight: 95.2 kg

DRUGS (1)
  1. XYLOCAINE MPF WITH EPINEPHRINE [Suspect]
     Active Substance: EPINEPHRINE BITARTRATE\LIDOCAINE HYDROCHLORIDE
     Indication: Epidural anaesthesia
     Dosage: 2.5ML
     Route: 008
     Dates: start: 20220630

REACTIONS (1)
  - Tachycardia [Recovered/Resolved]

NARRATIVE: CASE EVENT DATE: 20220630
